FAERS Safety Report 21949661 (Version 1)
Quarter: 2023Q1

REPORT INFORMATION
  Report Type: Spontaneous
  Country: US (occurrence: None)
  Receive Date: 20230202
  Receipt Date: 20230202
  Transmission Date: 20230418
  Serious: Yes (Other)
  Sender: FDA-Public Use
  Company Number: None

PATIENT
  Age: 45 Year
  Sex: Female
  Weight: 121.5 kg

DRUGS (1)
  1. PAXLOVID [Suspect]
     Active Substance: NIRMATRELVIR\RITONAVIR
     Indication: COVID-19
     Dates: start: 20230128, end: 20230131

REACTIONS (6)
  - Dysgeusia [None]
  - Diarrhoea [None]
  - Rash [None]
  - Lip swelling [None]
  - Eye swelling [None]
  - Therapy cessation [None]

NARRATIVE: CASE EVENT DATE: 20230131
